FAERS Safety Report 7618556-4 (Version None)
Quarter: 2011Q3

REPORT INFORMATION
  Report Type: 
  Country: None (occurrence: None)
  Receive Date: 20110718
  Receipt Date: 20110711
  Transmission Date: 20111222
  Serious: Yes (Other)
  Sender: FDA-Public Use
  Company Number: CL-PFIZER INC-2011157375

PATIENT
  Sex: Female

DRUGS (1)
  1. MEDROXYPROGESTERONE ACETATE [Suspect]
     Indication: CONTRACEPTION
     Dosage: UNK
     Dates: start: 20110709

REACTIONS (5)
  - SWELLING FACE [None]
  - VOMITING [None]
  - BACK PAIN [None]
  - HYPERTENSION [None]
  - DIARRHOEA [None]
